FAERS Safety Report 5150675-7 (Version None)
Quarter: 2006Q4

REPORT INFORMATION
  Report Type: 
  Country: None (occurrence: None)
  Receive Date: 20061114
  Receipt Date: 20061101
  Transmission Date: 20070319
  Serious: Yes (Hospitalization)
  Sender: FDA-Public Use
  Company Number: DE-ABBOTT-06P-062-0348838-00

PATIENT
  Sex: Female
  Weight: 103 kg

DRUGS (12)
  1. HUMIRA [Suspect]
     Indication: RHEUMATOID ARTHRITIS
     Route: 058
     Dates: start: 20060716, end: 20060730
  2. METHOTREXATE [Concomitant]
     Indication: RHEUMATOID ARTHRITIS
     Route: 030
     Dates: end: 20060801
  3. IBUPROFEN LYSINATE [Concomitant]
     Indication: RHEUMATOID ARTHRITIS
     Route: 048
     Dates: end: 20060801
  4. IRBESARTAN [Concomitant]
     Indication: HYPERTENSION
     Route: 048
     Dates: end: 20060801
  5. TORSEMIDE [Concomitant]
     Indication: HYPERTENSION
     Route: 048
  6. SPIRONOLACTONE [Concomitant]
     Indication: HYPERTENSION
     Route: 048
     Dates: end: 20060801
  7. MOXONIDINE [Concomitant]
     Indication: HYPERTENSION
     Route: 048
  8. KETOTIFEN FUMARATE [Concomitant]
     Indication: LUNG DISORDER
     Route: 048
  9. ALLOPURINOL [Concomitant]
     Indication: HYPERURICAEMIA
     Route: 048
  10. NEBIVOLOL HYDROCHLORIDE [Concomitant]
     Indication: HYPERTENSION
     Route: 048
  11. AMITRIPTYLINE HCL [Concomitant]
     Indication: DEPRESSION
     Route: 048
  12. THEOPHYLLINE [Concomitant]
     Indication: LUNG DISORDER
     Route: 048

REACTIONS (7)
  - BLADDER PAIN [None]
  - BLOOD CREATININE INCREASED [None]
  - CHILLS [None]
  - DIARRHOEA [None]
  - HEADACHE [None]
  - PYREXIA [None]
  - VOMITING [None]
